FAERS Safety Report 5305625-7 (Version None)
Quarter: 2007Q2

REPORT INFORMATION
  Report Type: 
  Country: None (occurrence: None)
  Receive Date: 20070419
  Receipt Date: 20070419
  Transmission Date: 20071010
  Serious: Yes (Hospitalization)
  Sender: FDA-Public Use
  Company Number: None

PATIENT
  Sex: Female
  Weight: 53.1 kg

DRUGS (6)
  1. CISPLATIN [Suspect]
     Dosage: 73 MG
  2. DOXORUBICIN HYDROCHLORIDE [Suspect]
     Dosage: 65 MG
  3. G-CSF (FILGRASTIM, AMGEN) [Suspect]
     Dosage: 6 MG
  4. TAXOL [Suspect]
     Dosage: 235 MG
  5. FENTANYL [Concomitant]
  6. LASIX [Concomitant]

REACTIONS (8)
  - BLOOD PRESSURE INCREASED [None]
  - DEHYDRATION [None]
  - DIZZINESS [None]
  - DYSPNOEA [None]
  - EJECTION FRACTION DECREASED [None]
  - HYPOKINESIA [None]
  - MULTI-ORGAN FAILURE [None]
  - TACHYCARDIA [None]
